FAERS Safety Report 19637047 (Version 2)
Quarter: 2021Q3

REPORT INFORMATION
  Report Type: Spontaneous
  Country: US (occurrence: US)
  Receive Date: 20210729
  Receipt Date: 20210922
  Transmission Date: 20211014
  Serious: No
  Sender: FDA-Public Use
  Company Number: US-ASTRAZENECA-2021A644094

PATIENT
  Sex: Male
  Weight: 86.2 kg

DRUGS (3)
  1. AZELASTINE. [Concomitant]
     Active Substance: AZELASTINE HYDROCHLORIDE
  2. GENERIC SYMBICORT [Suspect]
     Active Substance: BUDESONIDE\FORMOTEROL FUMARATE DIHYDRATE
     Indication: ASTHMA
     Dosage: TWO TIMES A DAY
     Route: 055
  3. ALBUTEROL. [Concomitant]
     Active Substance: ALBUTEROL

REACTIONS (6)
  - Oxygen saturation decreased [Unknown]
  - Drug delivery system issue [Not Recovered/Not Resolved]
  - Product use issue [Unknown]
  - Device issue [Not Recovered/Not Resolved]
  - Device defective [Unknown]
  - Device delivery system issue [Unknown]
